FAERS Safety Report 6549561-7 (Version None)
Quarter: 2010Q1

REPORT INFORMATION
  Report Type: 
  Country: None (occurrence: None)
  Receive Date: 20100125
  Receipt Date: 20100115
  Transmission Date: 20100710
  Serious: Yes (Death)
  Sender: FDA-Public Use
  Company Number: US-AMGEN-QUU386008

PATIENT
  Sex: Female

DRUGS (3)
  1. NPLATE [Suspect]
     Indication: IDIOPATHIC THROMBOCYTOPENIC PURPURA
     Dates: start: 20090303, end: 20090923
  2. CORTICOSTEROIDS [Concomitant]
  3. AMICAR [Concomitant]

REACTIONS (1)
  - CARDIAC FAILURE [None]
